FAERS Safety Report 8137002-8 (Version None)
Quarter: 2012Q1

REPORT INFORMATION
  Report Type: 
  Country: None (occurrence: None)
  Receive Date: 20120215
  Receipt Date: 20120208
  Transmission Date: 20120608
  Serious: Yes (Hospitalization, Other)
  Sender: FDA-Public Use
  Company Number: US-BIOGENIDEC-2011BI030733

PATIENT
  Age: 46 Year
  Sex: Female

DRUGS (10)
  1. TYSABRI [Suspect]
     Indication: MULTIPLE SCLEROSIS
     Route: 042
     Dates: start: 20090713
  2. BACLOFEN [Concomitant]
     Indication: MUSCLE SPASTICITY
     Route: 048
  3. COUMADIN [Concomitant]
     Route: 048
  4. OXYCODONE HCL [Concomitant]
     Route: 048
  5. NEXIUM [Concomitant]
  6. VALIUM [Concomitant]
     Route: 048
  7. MECLIZINE [Concomitant]
     Route: 048
  8. MULTI-VITAMIN [Concomitant]
  9. LUNESTA [Concomitant]
     Indication: INSOMNIA
     Route: 048
  10. EFFEXOR [Concomitant]
     Route: 048

REACTIONS (1)
  - OVERDOSE [None]
